FAERS Safety Report 5590902-5 (Version None)
Quarter: 2007Q4

REPORT INFORMATION
  Report Type: 
  Country: None (occurrence: None)
  Receive Date: 20071214
  Receipt Date: 20070508
  Transmission Date: 20080405
  Serious: Yes (Hospitalization)
  Sender: FDA-Public Use
  Company Number: PHEH2007US07121

PATIENT
  Age: 40 Year
  Sex: Male

DRUGS (3)
  1. SANDOSTATIN [Suspect]
     Indication: ACROMEGALY
     Dosage: 0.1 UNK, TID, SUBCUTANEOUS
     Route: 058
     Dates: start: 20000101
  2. ANDROGEL [Concomitant]
  3. LEVOXYL [Concomitant]

REACTIONS (1)
  - HEADACHE [None]
